FAERS Safety Report 4976786-4 (Version None)
Quarter: 2006Q2

REPORT INFORMATION
  Report Type: 
  Country: None (occurrence: None)
  Receive Date: 20060419
  Receipt Date: 20060331
  Transmission Date: 20061013
  Serious: Yes (Life-Threatening, Hospitalization)
  Sender: FDA-Public Use
  Company Number: US-ROCHE-442814

PATIENT
  Age: 66 Year
  Sex: Female
  Weight: 108.9 kg

DRUGS (1)
  1. BONIVA [Suspect]
     Indication: OSTEOPOROSIS
     Dosage: FREQUENCY REPORTED AS QMOS
     Route: 048
     Dates: start: 20060310

REACTIONS (4)
  - NAUSEA [None]
  - RENAL FAILURE ACUTE [None]
  - RENAL TUBULAR NECROSIS [None]
  - TEARFULNESS [None]
